FAERS Safety Report 6979054 (Version 2)
Quarter: 2014Q3

REPORT INFORMATION
  Report Type: Spontaneous
  Country: IT (occurrence: None)
  Receive Date: 20090417
  Receipt Date: 20140822
  Transmission Date: 20150326
  Serious: Yes (Life-Threatening)
  Sender: FDA-Public Use
  Company Number: 238784

PATIENT
  Age: 73 Year
  Sex: Female

DRUGS (1)
  1. PACLITAXEL. [Suspect]
     Active Substance: PACLITAXEL
     Indication: BREAST CANCER
     Dosage: 130 MG, INTRAVENOUS
     Route: 042
     Dates: start: 20090327, end: 20090327

REACTIONS (2)
  - Hypertensive crisis [None]
  - Hypersensitivity [None]

NARRATIVE: CASE EVENT DATE: 20090327
